FAERS Safety Report 10337027 (Version 2)
Quarter: 2014Q3

REPORT INFORMATION
  Report Type: Spontaneous
  Country: US (occurrence: US)
  Receive Date: 20140723
  Receipt Date: 20140723
  Transmission Date: 20150326
  Serious: Yes (Hospitalization, Other)
  Sender: FDA-Public Use
  Company Number: US-009507513-2009SP023301

PATIENT
  Sex: Female
  Weight: 113.4 kg

DRUGS (2)
  1. NUVARING [Suspect]
     Active Substance: ETHINYL ESTRADIOL\ETONOGESTREL
     Indication: CONTRACEPTION
     Dosage: UNK
     Dates: start: 200302, end: 20070818
  2. TYLENOL [Concomitant]
     Active Substance: ACETAMINOPHEN
     Indication: PRODUCT USED FOR UNKNOWN INDICATION
     Dosage: UNK UNK, PRN
     Dates: start: 200707

REACTIONS (22)
  - Dyspnoea [Unknown]
  - Depression [Recovered/Resolved]
  - Pulmonary embolism [Recovered/Resolved]
  - Dyspnoea exertional [Unknown]
  - Cataract [Unknown]
  - Deep vein thrombosis [Recovered/Resolved]
  - Tendonitis [Unknown]
  - Pain in extremity [Unknown]
  - Unintended pregnancy [Recovered/Resolved]
  - Cervical dysplasia [Unknown]
  - Renal cyst [Unknown]
  - Labile blood pressure [Unknown]
  - Weight increased [Recovering/Resolving]
  - Osteoarthritis [Unknown]
  - Migraine [Unknown]
  - Iron deficiency anaemia [Unknown]
  - Thrombosis [Unknown]
  - Hypertension [Unknown]
  - Fatigue [Unknown]
  - Uveitis [Unknown]
  - Sleep apnoea syndrome [Unknown]
  - Metabolic syndrome [Unknown]

NARRATIVE: CASE EVENT DATE: 200401
